FAERS Safety Report 6208321-7 (Version None)
Quarter: 2009Q2

REPORT INFORMATION
  Report Type: 
  Country: None (occurrence: None)
  Receive Date: 20090522
  Receipt Date: 20090511
  Transmission Date: 20091009
  Serious: Yes (Death, Hospitalization)
  Sender: FDA-Public Use
  Company Number: 006422

PATIENT
  Age: 19 Year

DRUGS (6)
  1. BUSULFEX [Suspect]
     Indication: STEM CELL TRANSPLANT
     Dosage: 16 MG/KG, QD URETHRAL
     Route: 066
  2. CAMPATH [Suspect]
     Indication: STEM CELL TRANSPLANT
     Dosage: 100 MG
  3. CYCLOSPORINE [Suspect]
     Indication: PROPHYLAXIS AGAINST GRAFT VERSUS HOST DISEASE
  4. MELPHALAN (MELPHALAN) [Suspect]
     Indication: STEM CELL TRANSPLANT
     Dosage: 140 MG/M2
  5. CO-TRIMOXAZOLE (SULFAMETHOXAZOLE) [Concomitant]
  6. ITRACONAZOLE [Concomitant]

REACTIONS (6)
  - ARTERIAL HAEMORRHAGE [None]
  - PNEUMONITIS [None]
  - SCEDOSPORIUM INFECTION [None]
  - SYSTEMIC MYCOSIS [None]
  - TRACHEOSTOMY MALFUNCTION [None]
  - VASCULAR INJURY [None]
